FAERS Safety Report 18630509 (Version 1)
Quarter: 2020Q4

REPORT INFORMATION
  Report Type: Spontaneous
  Country: US (occurrence: US)
  Receive Date: 20201217
  Receipt Date: 20201217
  Transmission Date: 20210114
  Serious: No
  Sender: FDA-Public Use
  Company Number: US-SUNOVION-2020SUN003683

PATIENT
  Sex: Male

DRUGS (3)
  1. CYMBALTA [Concomitant]
     Active Substance: DULOXETINE HYDROCHLORIDE
     Dosage: UNK
  2. LATUDA [Suspect]
     Active Substance: LURASIDONE HYDROCHLORIDE
     Dosage: 20 MG
     Route: 048
  3. LATUDA [Suspect]
     Active Substance: LURASIDONE HYDROCHLORIDE
     Dosage: 10 MG, BID (CUT THE TABLET IN HALF A COUPLE OF TIMES AND TOOK 10MG IN THE MORNING AND 10MG IN THE EV
     Route: 048

REACTIONS (4)
  - Restlessness [Unknown]
  - Osteoarthritis [Unknown]
  - Off label use [Unknown]
  - Wrong technique in product usage process [Unknown]
